FAERS Safety Report 9461291 (Version 4)
Quarter: 2014Q2

REPORT INFORMATION
  Report Type: Spontaneous
  Country: US (occurrence: US)
  Receive Date: 20130816
  Receipt Date: 20140515
  Transmission Date: 20141212
  Serious: No
  Sender: FDA-Public Use
  Company Number: US-PFIZER INC-2013235555

PATIENT
  Age: 61 Year
  Sex: Male

DRUGS (3)
  1. INLYTA [Suspect]
     Indication: RENAL CANCER METASTATIC
     Dosage: 3 MG, 2X/DAY
     Route: 048
     Dates: start: 20110714
  2. INLYTA [Suspect]
     Indication: HEPATIC CANCER
     Dosage: 3 MG, 2X/DAY (TAKE 1 MG 3 TABLETS TWICE A DAY)
     Route: 048
     Dates: start: 201302
  3. INLYTA [Suspect]
     Dosage: 3 MG, 2X/DAY, 1 MG TAKE 3 TABLETS BID
     Dates: start: 201304

REACTIONS (6)
  - Constipation [Unknown]
  - Skin lesion [Unknown]
  - Fatigue [Unknown]
  - Abdominal pain upper [Unknown]
  - Diarrhoea [Unknown]
  - Nausea [Unknown]
